FAERS Safety Report 16078528 (Version 2)
Quarter: 2019Q2

REPORT INFORMATION
  Report Type: Report from Study
  Country: US (occurrence: US)
  Receive Date: 20190315
  Receipt Date: 20190404
  Transmission Date: 20190711
  Serious: Yes (Death, Hospitalization, Other)
  Sender: FDA-Public Use
  Company Number: US-JNJFOC-20190315979

PATIENT
  Age: 73 Year
  Sex: Female

DRUGS (23)
  1. ALBUTEROL. [Concomitant]
     Active Substance: ALBUTEROL
  2. CALCIUM VITAMIN D [Concomitant]
     Active Substance: CALCIUM\VITAMIN D
  3. CENTRUM SILVER [Concomitant]
     Active Substance: MINERALS\VITAMINS
  4. CYANOCOBALAMIN. [Concomitant]
     Active Substance: CYANOCOBALAMIN
  5. IRON [Concomitant]
     Active Substance: IRON
  6. ALPRAZOLAM. [Concomitant]
     Active Substance: ALPRAZOLAM
  7. IMBRUVICA [Suspect]
     Active Substance: IBRUTINIB
     Indication: CHRONIC LYMPHOCYTIC LEUKAEMIA
     Route: 048
     Dates: start: 20190115, end: 20190301
  8. AMLODIPINE [Concomitant]
     Active Substance: AMLODIPINE BESYLATE
  9. FUROSEMIDE. [Concomitant]
     Active Substance: FUROSEMIDE
  10. LEVOTHYROXINE. [Concomitant]
     Active Substance: LEVOTHYROXINE
  11. LISINOPRIL. [Concomitant]
     Active Substance: LISINOPRIL
  12. GLIPIZIDE. [Concomitant]
     Active Substance: GLIPIZIDE
  13. PIOGLITAZONE. [Concomitant]
     Active Substance: PIOGLITAZONE
  14. IMBRUVICA [Suspect]
     Active Substance: IBRUTINIB
     Indication: CHRONIC LYMPHOCYTIC LEUKAEMIA
     Route: 048
     Dates: end: 20190327
  15. ASPIRIN. [Concomitant]
     Active Substance: ASPIRIN
  16. SIMVASTATIN. [Concomitant]
     Active Substance: SIMVASTATIN
  17. CARVEDILOL. [Concomitant]
     Active Substance: CARVEDILOL
  18. FAMOTIDINE. [Concomitant]
     Active Substance: FAMOTIDINE
  19. BACTRIM [Concomitant]
     Active Substance: SULFAMETHOXAZOLE\TRIMETHOPRIM
  20. ASCORBIC ACID. [Concomitant]
     Active Substance: ASCORBIC ACID
  21. LIDOCAINE. [Concomitant]
     Active Substance: LIDOCAINE
  22. METFORMIN [Concomitant]
     Active Substance: METFORMIN HYDROCHLORIDE
  23. SENNA [Concomitant]
     Active Substance: SENNA LEAF\SENNOSIDES\SENNOSIDES A AND B

REACTIONS (6)
  - Vomiting [Unknown]
  - Hypotension [Unknown]
  - Nausea [Unknown]
  - Atrial fibrillation [Unknown]
  - Death [Fatal]
  - Thrombocytopenia [Unknown]

NARRATIVE: CASE EVENT DATE: 20190228
